FAERS Safety Report 25117897 (Version 4)
Quarter: 2025Q3

REPORT INFORMATION
  Report Type: Spontaneous
  Country: US (occurrence: US)
  Receive Date: 20250325
  Receipt Date: 20250725
  Transmission Date: 20251020
  Serious: Yes (Other)
  Sender: BAYER HEALTHCARE PHARMACEUTICALS INC.
  Company Number: US-BAYER-2025A038536

PATIENT
  Age: 50 Year
  Sex: Male

DRUGS (11)
  1. KOVALTRY [Suspect]
     Active Substance: ANTIHEMOPHILIC FACTOR, HUMAN RECOMBINANT
     Indication: Factor VIII deficiency
     Route: 042
     Dates: start: 202407
  2. KOVALTRY [Suspect]
     Active Substance: ANTIHEMOPHILIC FACTOR, HUMAN RECOMBINANT
     Indication: Factor VIII deficiency
     Route: 042
     Dates: start: 20250307
  3. KOVALTRY [Suspect]
     Active Substance: ANTIHEMOPHILIC FACTOR, HUMAN RECOMBINANT
     Indication: Factor VIII deficiency
     Dates: start: 20250316
  4. KOVALTRY [Suspect]
     Active Substance: ANTIHEMOPHILIC FACTOR, HUMAN RECOMBINANT
     Indication: Factor VIII deficiency
     Route: 042
     Dates: start: 20250403
  5. KOVALTRY [Suspect]
     Active Substance: ANTIHEMOPHILIC FACTOR, HUMAN RECOMBINANT
     Indication: Factor VIII deficiency
     Route: 042
     Dates: start: 20250416
  6. KOVALTRY [Suspect]
     Active Substance: ANTIHEMOPHILIC FACTOR, HUMAN RECOMBINANT
     Indication: Factor VIII deficiency
  7. KOVALTRY [Suspect]
     Active Substance: ANTIHEMOPHILIC FACTOR, HUMAN RECOMBINANT
     Indication: Factor VIII deficiency
     Dosage: KOVALTRY 3000/ 2900 IU, TIW PRN
  8. KOVALTRY [Suspect]
     Active Substance: ANTIHEMOPHILIC FACTOR, HUMAN RECOMBINANT
     Indication: Factor VIII deficiency
     Dosage: KOVALTRY 2000 UNITS/ 2000 IU, TIW SLOW IV PUSH THREE TIMES A WEEK FOR PROPHYLAXIS AND AS DIRECTED FO
     Route: 042
     Dates: start: 202407
  9. KOVALTRY [Suspect]
     Active Substance: ANTIHEMOPHILIC FACTOR, HUMAN RECOMBINANT
     Indication: Factor VIII deficiency
     Dosage: KOVALTRY 500 UNITS/ 900 IU, TIW SLOW IV PUSH THREE TIMES A WEEK FOR PROPHYLAXIS AND AS DIRECTED FOR
     Route: 042
     Dates: start: 202407
  10. KOVALTRY [Suspect]
     Active Substance: ANTIHEMOPHILIC FACTOR, HUMAN RECOMBINANT
     Indication: Factor VIII deficiency
     Dates: start: 20250710
  11. HEMLIBRA [Concomitant]
     Active Substance: EMICIZUMAB-KXWH
     Indication: Prophylaxis

REACTIONS (7)
  - Traumatic haemorrhage [Recovered/Resolved]
  - Haemarthrosis [Recovered/Resolved]
  - Haemarthrosis [Recovered/Resolved]
  - Haemarthrosis [Recovered/Resolved]
  - Haemarthrosis [Recovered/Resolved]
  - Haemarthrosis [None]
  - Limb injury [None]

NARRATIVE: CASE EVENT DATE: 20250307
